FAERS Safety Report 4380552-0 (Version None)
Quarter: 2004Q2

REPORT INFORMATION
  Report Type: 
  Country: None (occurrence: None)
  Receive Date: 20040614
  Receipt Date: 20040305
  Transmission Date: 20050107
  Serious: Yes (Death, Hospitalization)
  Sender: FDA-Public Use
  Company Number: M04-341-060

PATIENT
  Age: 75 Year
  Sex: Female
  Weight: 54 kg

DRUGS (12)
  1. VELCADE [Suspect]
     Indication: MULTIPLE MYELOMA
     Dosage: 2 MG : INTRAVENOUS BOLUS
     Route: 040
     Dates: start: 20030902, end: 20040224
  2. DIGOXIN [Concomitant]
  3. DIPHENHYDRAMINE [Concomitant]
  4. ENALAPRIL MALEATE [Concomitant]
  5. FUROSEMIDE [Concomitant]
  6. GABAPENTIN [Concomitant]
  7. METFORMIN HCL [Concomitant]
  8. MULTI-VITAMINS [Concomitant]
  9. NITROFURANTOIN [Concomitant]
  10. REPAGLINIDE [Concomitant]
  11. SPIRONOLACTONE [Concomitant]
  12. VITAMIN B6 [Concomitant]

REACTIONS (2)
  - CARDIAC ARREST [None]
  - CARDIAC FAILURE CONGESTIVE [None]
